FAERS Safety Report 8983701 (Version 1)
Quarter: 2012Q4

REPORT INFORMATION
  Report Type: 
  Country: GR (occurrence: GR)
  Receive Date: 20121221
  Receipt Date: 20121221
  Transmission Date: 20130627
  Serious: Yes (Other)
  Sender: FDA-Public Use
  Company Number: GR-ABBOTT-12P-066-1025699-00

PATIENT
  Sex: Female

DRUGS (4)
  1. UTROGESTAN [Suspect]
     Indication: COMPLICATION OF PREGNANCY
     Route: 067
     Dates: start: 20120419
  2. SALOSPIR [Concomitant]
     Indication: HYPERCOAGULATION
     Route: 065
     Dates: end: 201205
  3. GLUCOPHAGE [Concomitant]
     Indication: BLOOD INSULIN ABNORMAL
     Route: 065
     Dates: end: 201205
  4. FOLIDEX [Concomitant]
     Indication: PREGNANCY
     Route: 065
     Dates: end: 201205

REACTIONS (4)
  - Insomnia [Recovered/Resolved]
  - Poor quality sleep [Recovered/Resolved]
  - Abortion [Unknown]
  - Drug ineffective [Unknown]
